FAERS Safety Report 11876906 (Version 3)
Quarter: 2016Q2

REPORT INFORMATION
  Report Type: Report from Study
  Country: US (occurrence: US)
  Receive Date: 20151229
  Receipt Date: 20160608
  Transmission Date: 20160815
  Serious: Yes (Hospitalization)
  Sender: FDA-Public Use
  Company Number: US-SA-2015SA218196

PATIENT
  Age: 41 Year
  Sex: Female

DRUGS (1)
  1. LEMTRADA [Suspect]
     Active Substance: ALEMTUZUMAB
     Indication: MULTIPLE SCLEROSIS
     Route: 041
     Dates: start: 20150608, end: 20150612

REACTIONS (5)
  - Abnormal behaviour [Not Recovered/Not Resolved]
  - Movement disorder [Not Recovered/Not Resolved]
  - Therapy change [Unknown]
  - Hospitalisation [Unknown]
  - Urinary tract infection [Unknown]

NARRATIVE: CASE EVENT DATE: 2015
